FAERS Safety Report 10209803 (Version 1)
Quarter: 2014Q2

REPORT INFORMATION
  Report Type: Spontaneous
  Country: US (occurrence: US)
  Receive Date: 20140602
  Receipt Date: 20140602
  Transmission Date: 20141212
  Serious: Yes (Other)
  Sender: FDA-Public Use
  Company Number: PHEH2014US010690

PATIENT
  Sex: 0

DRUGS (2)
  1. TASIGNA [Suspect]
     Indication: CHRONIC MYELOID LEUKAEMIA
     Dosage: 150 MG, BID
  2. TASIGNA [Suspect]
     Dosage: 200 MG, BID

REACTIONS (2)
  - Electrocardiogram QT prolonged [Unknown]
  - Drug prescribing error [Unknown]
